FAERS Safety Report 6210779-4 (Version None)
Quarter: 2009Q2

REPORT INFORMATION
  Report Type: 
  Country: None (occurrence: None)
  Receive Date: 20090527
  Receipt Date: 20090519
  Transmission Date: 20091009
  Serious: Yes (Hospitalization, Other)
  Sender: FDA-Public Use
  Company Number: 2008-178516-NL

PATIENT
  Age: 26 Year
  Sex: Female
  Weight: 73.5 kg

DRUGS (9)
  1. NUVARING [Suspect]
     Indication: CONTRACEPTION
     Dates: start: 20070708, end: 20071001
  2. NUVARING [Suspect]
     Indication: DYSMENORRHOEA
     Dates: start: 20070708, end: 20071001
  3. ADVAIR HFA [Concomitant]
  4. ALBUTEROL [Concomitant]
  5. ALLEGRA [Concomitant]
  6. OMEPRAZOLE [Concomitant]
  7. ARTHROTEC [Concomitant]
  8. SKELAXIN [Concomitant]
  9. IBUPROFEN [Concomitant]

REACTIONS (3)
  - EXERCISE TOLERANCE DECREASED [None]
  - PNEUMONIA [None]
  - PULMONARY EMBOLISM [None]
